FAERS Safety Report 10274517 (Version 12)
Quarter: 2015Q3

REPORT INFORMATION
  Report Type: Report from Study
  Country: US (occurrence: US)
  Receive Date: 20140702
  Receipt Date: 20150730
  Transmission Date: 20151125
  Serious: Yes (Hospitalization)
  Sender: FDA-Public Use
  Company Number: US-BAYER-2014-079192

PATIENT
  Age: 73 Year
  Sex: Female
  Weight: 45.35 kg

DRUGS (12)
  1. ADEMPAS [Suspect]
     Active Substance: RIOCIGUAT
     Indication: COR PULMONALE CHRONIC
     Dosage: 2 MG, TID
     Route: 048
     Dates: start: 20140513
  2. ADEMPAS [Suspect]
     Active Substance: RIOCIGUAT
     Indication: COR PULMONALE CHRONIC
     Dosage: 2.5 MG, TID
     Route: 048
  3. ADEMPAS [Suspect]
     Active Substance: RIOCIGUAT
     Indication: COR PULMONALE CHRONIC
     Dosage: 2.5 MG, TID
     Route: 048
  4. TYVASO [Concomitant]
     Active Substance: TREPROSTINIL
     Dosage: UNK
     Dates: end: 2014
  5. COUMADIN [Concomitant]
     Active Substance: WARFARIN SODIUM
     Dosage: UNK
  6. ADEMPAS [Suspect]
     Active Substance: RIOCIGUAT
     Indication: PULMONARY EMBOLISM
     Dosage: 1.5 MG, TID
     Route: 048
  7. ADEMPAS [Suspect]
     Active Substance: RIOCIGUAT
     Indication: COR PULMONALE CHRONIC
     Dosage: 2.5 MG, TID
     Route: 048
     Dates: start: 20140512
  8. ADEMPAS [Suspect]
     Active Substance: RIOCIGUAT
     Indication: COR PULMONALE CHRONIC
     Dosage: 2.5 MG, TID
     Route: 048
  9. ADEMPAS [Suspect]
     Active Substance: RIOCIGUAT
     Indication: COR PULMONALE CHRONIC
     Dosage: 2.5 MG, TID
     Route: 048
  10. ADEMPAS [Suspect]
     Active Substance: RIOCIGUAT
     Indication: COR PULMONALE CHRONIC
     Dosage: 0.5 MG, TID
     Route: 048
     Dates: start: 20140512
  11. TYVASO [Concomitant]
     Active Substance: TREPROSTINIL
     Dosage: UNK
  12. ADEMPAS [Suspect]
     Active Substance: RIOCIGUAT
     Indication: PULMONARY HYPERTENSION
     Dosage: 2 MG, TID
     Route: 048

REACTIONS (18)
  - Wound [None]
  - Seasonal allergy [Unknown]
  - Dry skin [None]
  - Pruritus [Unknown]
  - Pruritus [None]
  - Pulmonary arterial hypertension [None]
  - Cough [Unknown]
  - Drug ineffective [None]
  - Headache [Unknown]
  - Laboratory test abnormal [Unknown]
  - Disorientation [None]
  - Epistaxis [Unknown]
  - Dyspepsia [Not Recovered/Not Resolved]
  - Headache [Unknown]
  - Dry skin [Unknown]
  - Mental status changes [None]
  - Dizziness [None]
  - Pain in extremity [None]

NARRATIVE: CASE EVENT DATE: 20140502
